FAERS Safety Report 5899477-4 (Version None)
Quarter: 2008Q3

REPORT INFORMATION
  Report Type: 
  Country: None (occurrence: None)
  Receive Date: 20080926
  Receipt Date: 20080917
  Transmission Date: 20090109
  Serious: Yes (Other)
  Sender: FDA-Public Use
  Company Number: US-JNJFOC-20080904672

PATIENT
  Sex: Female

DRUGS (3)
  1. DOXIL [Suspect]
     Indication: MULTIPLE MYELOMA
     Route: 042
  2. VELCADE [Suspect]
     Indication: MULTIPLE MYELOMA
     Route: 065
  3. PROCRIT [Concomitant]
     Indication: HAEMOGLOBIN DECREASED
     Route: 065

REACTIONS (5)
  - BLISTER [None]
  - ERYTHEMA [None]
  - GRIP STRENGTH DECREASED [None]
  - NEUROPATHY PERIPHERAL [None]
  - SKIN DISCOLOURATION [None]
